FAERS Safety Report 5984086 (Version 2)
Quarter: 2013Q2

REPORT INFORMATION
  Report Type: Spontaneous
  Country: AT (occurrence: AT)
  Receive Date: 20060201
  Receipt Date: 20130503
  Transmission Date: 20140414
  Serious: Yes (Hospitalization, Other)
  Sender: FDA-Public Use
  Company Number: GXKR2006AT00603

PATIENT
  Age: 75 Year
  Sex: Male

DRUGS (6)
  1. METFORMIN [Suspect]
     Indication: TYPE 2 DIABETES MELLITUS
     Dosage: 1000 MG, BID
     Route: 048
  2. FENOFIBRATE [Interacting]
     Indication: HYPERTRIGLYCERIDAEMIA
     Dosage: 200 MG, QD
     Route: 048
  3. ROSIGLITAZONE [Interacting]
     Indication: DIABETES MELLITUS INADEQUATE CONTROL
     Dosage: 2 MG, BID
     Route: 048
  4. PHENPROCOUMON [Concomitant]
     Route: 065
  5. VALSARTAN [Concomitant]
     Route: 065
  6. SYMPATHOMIMETICS [Concomitant]

REACTIONS (11)
  - Rhabdomyolysis [Recovered/Resolved]
  - Pain in extremity [Recovered/Resolved]
  - Muscle spasms [Recovered/Resolved]
  - Myopathy [Recovered/Resolved]
  - Renal impairment [Recovered/Resolved]
  - Blood creatine phosphokinase increased [Recovered/Resolved]
  - Myoglobin blood increased [Recovered/Resolved]
  - Blood creatinine increased [Recovered/Resolved]
  - Blood urea increased [Unknown]
  - Transaminases increased [Unknown]
  - Drug interaction [Recovered/Resolved]
